FAERS Safety Report 18746340 (Version 2)
Quarter: 2021Q1

REPORT INFORMATION
  Report Type: Spontaneous
  Country: NL (occurrence: FR)
  Receive Date: 20210115
  Receipt Date: 20210202
  Transmission Date: 20210419
  Serious: Yes (Hospitalization)
  Sender: FDA-Public Use
  Company Number: FR-FRESENIUS KABI-FK202100307

PATIENT
  Age: 56 Year
  Sex: Female
  Weight: 62 kg

DRUGS (3)
  1. CARBOPLATIN (MANUFACTURER UNKNOWN) [Suspect]
     Active Substance: CARBOPLATIN
     Indication: ENDOMETRIAL ADENOCARCINOMA
     Dosage: UNKNOWN
     Route: 042
     Dates: start: 20201124, end: 20201124
  2. FILGRASTIM [Suspect]
     Active Substance: FILGRASTIM
     Indication: CHEMOTHERAPY CYTOKINE PROPHYLAXIS
     Dosage: UNKNOWN?FILGASTRIM AMGEN
     Route: 058
     Dates: start: 20201128, end: 20201203
  3. PACLITAXEL (MANUFACTURER UNKNOWN) [Suspect]
     Active Substance: PACLITAXEL
     Indication: ENDOMETRIAL ADENOCARCINOMA
     Dosage: UNKNOWN
     Route: 042
     Dates: start: 20201124, end: 20201124

REACTIONS (1)
  - Ischaemic stroke [Recovering/Resolving]

NARRATIVE: CASE EVENT DATE: 20201215
